FAERS Safety Report 7995650-X (Version None)
Quarter: 2011Q4

REPORT INFORMATION
  Report Type: 
  Country: None (occurrence: None)
  Receive Date: 20111220
  Receipt Date: 20110225
  Transmission Date: 20120403
  Serious: No
  Sender: FDA-Public Use
  Company Number: US-MYLANLABS-2011S1004029

PATIENT

DRUGS (1)
  1. SOTRADECOL [Suspect]

REACTIONS (1)
  - ACCIDENTAL EXPOSURE [None]
